FAERS Safety Report 18774947 (Version 1)
Quarter: 2021Q1

REPORT INFORMATION
  Report Type: Spontaneous
  Country: FR (occurrence: FR)
  Receive Date: 20210122
  Receipt Date: 20210122
  Transmission Date: 20210419
  Serious: Yes (Other)
  Sender: FDA-Public Use
  Company Number: FR-AMGEN-FRASP2021009458

PATIENT
  Age: 69 Year
  Sex: Male

DRUGS (2)
  1. DARBEPOETIN ALFA [Suspect]
     Active Substance: DARBEPOETIN ALFA
     Indication: ANAEMIA
     Dosage: UNK
     Route: 065
  2. AFLIBERCEPT BETA [Concomitant]
     Indication: ENDOTHELIAL DYSFUNCTION

REACTIONS (1)
  - Retinal vein occlusion [Recovering/Resolving]
